FAERS Safety Report 8139756-3 (Version None)
Quarter: 2012Q1

REPORT INFORMATION
  Report Type: 
  Country: None (occurrence: None)
  Receive Date: 20120215
  Receipt Date: 20120201
  Transmission Date: 20120608
  Serious: Yes (Other)
  Sender: FDA-Public Use
  Company Number: ES-CELGENEUS-144-21880-11010717

PATIENT
  Age: 34 Year
  Sex: Male

DRUGS (7)
  1. REVLIMID [Suspect]
     Dosage: 25 MILLIGRAM
     Route: 048
     Dates: start: 20110110
  2. DEXAMETHASONE [Concomitant]
     Indication: MULTIPLE MYELOMA
     Dosage: 480 MILLIGRAM
     Route: 048
     Dates: start: 20101115, end: 20101212
  3. HAEMATOPOIETIC COLONY STIMULATING FACTORS [Concomitant]
     Route: 065
  4. HEPARIN [Concomitant]
     Indication: PROPHYLAXIS
     Route: 065
  5. DEXAMETHASONE [Concomitant]
     Dosage: 480 MILLIGRAM
     Route: 048
     Dates: start: 20110110
  6. REVLIMID [Suspect]
     Indication: MULTIPLE MYELOMA
     Dosage: 25 MILLIGRAM
     Route: 048
     Dates: start: 20101115, end: 20101205
  7. REVLIMID [Suspect]
     Route: 048
     Dates: start: 20101206, end: 20101212

REACTIONS (1)
  - PREGNANCY OF PARTNER [None]
